FAERS Safety Report 11272043 (Version 1)
Quarter: 2015Q2

REPORT INFORMATION
  Report Type: Spontaneous
  Country: US (occurrence: None)
  Receive Date: 20150625
  Receipt Date: 20150625
  Transmission Date: 20150821
  Serious: No
  Sender: FDA-Public Use
  Company Number: A-NJ2014-107524

PATIENT
  Age: 74 Year
  Sex: Female

DRUGS (14)
  1. OPSUMIT [Suspect]
     Active Substance: MACITENTAN
     Indication: PULMONARY ARTERIAL HYPERTENSION
     Route: 048
     Dates: start: 20141002
  2. OXYCONTIN [Concomitant]
     Active Substance: OXYCODONE HYDROCHLORIDE
  3. CRESTOR [Concomitant]
     Active Substance: ROSUVASTATIN CALCIUM
  4. FUROSEMIDE. [Concomitant]
     Active Substance: FUROSEMIDE
  5. VOLTAREN (DICLOFENAC) [Concomitant]
  6. VENTOLIN [Concomitant]
     Active Substance: ALBUTEROL SULFATE
  7. NASONEX [Concomitant]
     Active Substance: MOMETASONE FUROATE
  8. RECLAST [Concomitant]
     Active Substance: ZOLEDRONIC ACID
  9. BELVIQ (LORCASERN HYDROCHLORIDE) [Concomitant]
  10. FLUOXETINE [Concomitant]
     Active Substance: FLUOXETINE\FLUOXETINE HYDROCHLORIDE
  11. SYNTHROID [Concomitant]
     Active Substance: LEVOTHYROXINE SODIUM
  12. LANTUS [Concomitant]
     Active Substance: INSULIN GLARGINE
  13. JANUVIA [Concomitant]
     Active Substance: SITAGLIPTIN PHOSPHATE
  14. COUMADIN [Concomitant]
     Active Substance: WARFARIN SODIUM

REACTIONS (6)
  - Fluid retention [None]
  - Dyspnoea [None]
  - Oedema [None]
  - Weight increased [None]
  - Rash [None]
  - Weight decreased [None]

NARRATIVE: CASE EVENT DATE: 20141014
